FAERS Safety Report 19793864 (Version 1)
Quarter: 2021Q3

REPORT INFORMATION
  Report Type: Spontaneous
  Country: US (occurrence: US)
  Receive Date: 20210906
  Receipt Date: 20210906
  Transmission Date: 20211014
  Serious: No
  Sender: FDA-Public Use
  Company Number: US-PFIZER INC-2019444456

PATIENT
  Age: 10 Year
  Sex: Male

DRUGS (1)
  1. GENOTROPIN [Suspect]
     Active Substance: SOMATROPIN
     Dosage: 1.4 MG, DAILY
     Route: 058
     Dates: start: 201908

REACTIONS (6)
  - Device issue [Unknown]
  - Wrong technique in device usage process [Unknown]
  - Incorrect disposal of product [Unknown]
  - Drug dose omission by device [Unknown]
  - Product dose omission issue [Unknown]
  - Device leakage [Unknown]
